FAERS Safety Report 7220225-X (Version None)
Quarter: 2011Q1

REPORT INFORMATION
  Report Type: 
  Country: None (occurrence: None)
  Receive Date: 20110111
  Receipt Date: 20110106
  Transmission Date: 20110831
  Serious: Yes (Hospitalization)
  Sender: FDA-Public Use
  Company Number: FR-MERCK-1101FRA00031

PATIENT
  Age: 82 Year
  Sex: Female

DRUGS (13)
  1. JANUMET [Suspect]
     Indication: INSULIN-REQUIRING TYPE 2 DIABETES MELLITUS
     Route: 048
     Dates: start: 20100715, end: 20100801
  2. JANUMET [Suspect]
     Route: 048
     Dates: start: 20100907, end: 20100901
  3. ATENOLOL [Concomitant]
     Route: 048
  4. PREGABALIN [Concomitant]
     Route: 048
  5. DESLORATADINE [Concomitant]
     Route: 065
  6. DULOXETINE HYDROCHLORIDE [Concomitant]
     Route: 065
  7. FENOTEROL HYDROBROMIDE AND IPRATROPIUM BROMIDE [Concomitant]
     Route: 055
  8. VALSARTAN [Concomitant]
     Indication: HYPERTENSION
     Route: 048
  9. INSULIN GLARGINE [Concomitant]
     Indication: INSULIN-REQUIRING TYPE 2 DIABETES MELLITUS
     Route: 058
  10. POLYETHYLENE GLYCOL 4000 [Concomitant]
     Indication: CONSTIPATION
     Route: 065
  11. TRAMADOL HYDROCHLORIDE [Concomitant]
     Route: 065
  12. ESOMEPRAZOLE MAGNESIUM [Concomitant]
     Route: 065
  13. FLUTICASONE PROPIONATE AND SALMETEROL XINAFOATE [Concomitant]
     Route: 055

REACTIONS (5)
  - HYPERKALAEMIA [None]
  - RENAL FAILURE ACUTE [None]
  - GASTROINTESTINAL DISORDER [None]
  - DECREASED APPETITE [None]
  - SUBILEUS [None]
